FAERS Safety Report 9311510 (Version 1)
Quarter: 2013Q1

REPORT INFORMATION
  Report Type: Spontaneous
  Country: US (occurrence: None)
  Receive Date: 20121204
  Receipt Date: 20121204
  Transmission Date: 20140127
  Serious: No
  Sender: FDA-Public Use
  Company Number: 2012-00171

PATIENT
  Age: 78 Year
  Sex: Female
  Weight: 76.2 kg

DRUGS (6)
  1. ZICAM COLD REMEDY PLUS ORAL MIST [Suspect]
     Indication: NASAL CONGESTION
     Route: 048
     Dates: start: 20121017
  2. ZICAM COLD REMEDY PLUS ORAL MIST [Suspect]
     Indication: OROPHARYNGEAL PAIN
     Route: 048
     Dates: start: 20121017
  3. ZICAM EXTREME CONGESTION RELIEF [Suspect]
     Route: 048
     Dates: start: 20121017
  4. LYSINAPRIL [Concomitant]
  5. SYNTHROID [Concomitant]
  6. TRIAMTERENE [Concomitant]

REACTIONS (3)
  - Feeling abnormal [None]
  - Dysgeusia [None]
  - Anosmia [None]
